FAERS Safety Report 6358123-6 (Version None)
Quarter: 2009Q3

REPORT INFORMATION
  Report Type: 
  Country: None (occurrence: None)
  Receive Date: 20090916
  Receipt Date: 20090915
  Transmission Date: 20100115
  Serious: Yes (Hospitalization)
  Sender: FDA-Public Use
  Company Number: US-ROXANE LABORATORIES, INC.-2009-RO-00838RO

PATIENT
  Sex: Male
  Weight: 86 kg

DRUGS (8)
  1. PREDNISONE [Suspect]
     Indication: COLITIS ULCERATIVE
     Dosage: 10 MG
     Dates: start: 20080101, end: 20090101
  2. AZATHIOPRINE [Suspect]
     Indication: COLITIS ULCERATIVE
     Dosage: 50 MG
     Dates: start: 20090430
  3. AZATHIOPRINE [Suspect]
     Dosage: 100 MG
     Dates: end: 20090725
  4. COLAZAL [Concomitant]
     Indication: COLITIS ULCERATIVE
  5. LISINOPRIL [Concomitant]
     Indication: BLOOD PRESSURE
     Dosage: 10 MG
  6. LISINOPRIL [Concomitant]
     Dosage: 20 MG
  7. OMEPRAZOLE [Concomitant]
     Indication: GASTROOESOPHAGEAL REFLUX DISEASE
     Dosage: 20 MG
  8. ALENDRONATE SODIUM [Concomitant]
     Indication: RESORPTION BONE INCREASED

REACTIONS (6)
  - ANAEMIA [None]
  - FUNGUS CULTURE POSITIVE [None]
  - IMPAIRED HEALING [None]
  - PANCYTOPENIA [None]
  - PNEUMONIA [None]
  - RESORPTION BONE INCREASED [None]
